FAERS Safety Report 12435580 (Version 1)
Quarter: 2016Q2

REPORT INFORMATION
  Report Type: Spontaneous
  Country: US (occurrence: US)
  Receive Date: 20160603
  Receipt Date: 20160603
  Transmission Date: 20160815
  Serious: Yes (Other)
  Sender: FDA-Public Use
  Company Number: US-ROCHE-1681577

PATIENT
  Sex: Male

DRUGS (3)
  1. KLONOPIN [Suspect]
     Active Substance: CLONAZEPAM
     Indication: ANXIETY
     Dosage: TWO PILLS, THREE TIMES A DAY
     Route: 048
  2. FLEXERIL [Concomitant]
     Active Substance: CYCLOBENZAPRINE HYDROCHLORIDE
  3. ALCOHOL. [Concomitant]
     Active Substance: ALCOHOL

REACTIONS (6)
  - Restlessness [Unknown]
  - Abnormal behaviour [Unknown]
  - Coordination abnormal [Unknown]
  - Agitation [Unknown]
  - Suicidal ideation [Unknown]
  - Confusional state [Unknown]
